FAERS Safety Report 21189560 (Version 1)
Quarter: 2022Q3

REPORT INFORMATION
  Report Type: Spontaneous
  Country: US (occurrence: US)
  Receive Date: 20220809
  Receipt Date: 20220809
  Transmission Date: 20221026
  Serious: Yes (Death, Other)
  Sender: FDA-Public Use
  Company Number: US-AMGEN-USASP2022132847

PATIENT

DRUGS (1)
  1. INFLIXIMAB [Suspect]
     Active Substance: INFLIXIMAB
     Indication: Cronkhite-Canada syndrome
     Route: 065

REACTIONS (5)
  - Death [Fatal]
  - Cronkhite-Canada syndrome [Unknown]
  - Adenocarcinoma of colon [Unknown]
  - Drug effective for unapproved indication [Unknown]
  - Off label use [Unknown]
